FAERS Safety Report 6275051-5 (Version None)
Quarter: 2009Q3

REPORT INFORMATION
  Report Type: 
  Country: None (occurrence: None)
  Receive Date: 20090721
  Receipt Date: 20090714
  Transmission Date: 20100115
  Serious: Yes (Other)
  Sender: FDA-Public Use
  Company Number: GB-ROCHE-359190

PATIENT
  Sex: Male
  Weight: 76.7 kg

DRUGS (3)
  1. PEGASYS [Suspect]
     Indication: HEPATITIS C
     Dosage: DOSAGES/INTERVAL REPORTED AS:1.
     Route: 058
     Dates: start: 20031231
  2. PEGASYS [Suspect]
     Route: 058
     Dates: start: 20040107, end: 20040218
  3. COPEGUS [Suspect]
     Indication: HEPATITIS C
     Dosage: DOSAGES/INTERVAL REPORTED AS:1
     Route: 048
     Dates: start: 20040107, end: 20040218

REACTIONS (1)
  - GRAND MAL CONVULSION [None]
